FAERS Safety Report 11995302 (Version 1)
Quarter: 2016Q1

REPORT INFORMATION
  Report Type: Spontaneous
  Country: US (occurrence: US)
  Receive Date: 20160203
  Receipt Date: 20160203
  Transmission Date: 20160526
  Serious: Yes (Other)
  Sender: FDA-Public Use
  Company Number: US-PFIZER INC-2016053325

PATIENT
  Sex: Male

DRUGS (1)
  1. VIROPTIC [Suspect]
     Active Substance: TRIFLURIDINE
     Indication: HERPES ZOSTER
     Dosage: UNK

REACTIONS (4)
  - Product use issue [Unknown]
  - Drug administration error [Unknown]
  - Neoplasm malignant [Unknown]
  - Incorrect product storage [Unknown]
